FAERS Safety Report 5330690-0 (Version None)
Quarter: 2007Q2

REPORT INFORMATION
  Report Type: 
  Country: None (occurrence: None)
  Receive Date: 20070522
  Receipt Date: 20070514
  Transmission Date: 20071010
  Serious: Yes (Other)
  Sender: FDA-Public Use
  Company Number: PHEH2007US06615

PATIENT
  Age: 49 Year
  Sex: Female

DRUGS (1)
  1. ZELNORM [Suspect]
     Indication: IRRITABLE BOWEL SYNDROME
     Dosage: 6 MG, QD
     Route: 048
     Dates: start: 20030101, end: 20070416

REACTIONS (5)
  - CARDIAC DISORDER [None]
  - HEADACHE [None]
  - LIMB DISCOMFORT [None]
  - MYOCARDIAL INFARCTION [None]
  - PAIN IN EXTREMITY [None]
